FAERS Safety Report 25378774 (Version 5)
Quarter: 2025Q3

REPORT INFORMATION
  Report Type: Spontaneous
  Country: EU (occurrence: EU)
  Receive Date: 20250530
  Receipt Date: 20250904
  Transmission Date: 20251020
  Serious: Yes (Other)
  Sender: PFIZER
  Company Number: EU-PFIZER INC-PV202500044661

PATIENT
  Age: 60 Year
  Sex: Female

DRUGS (1)
  1. ELRANATAMAB [Suspect]
     Active Substance: ELRANATAMAB
     Indication: Plasma cell myeloma

REACTIONS (18)
  - Ophthalmic herpes zoster [Unknown]
  - Injection site erythema [Recovered/Resolved]
  - Injection site pruritus [Recovered/Resolved]
  - Injection site swelling [Recovered/Resolved]
  - Diarrhoea [Recovered/Resolved]
  - Dry skin [Unknown]
  - Fatigue [Recovering/Resolving]
  - Anosmia [Recovered/Resolved]
  - Palmar-plantar erythrodysaesthesia syndrome [Recovered/Resolved]
  - Dyspnoea exertional [Recovered/Resolved]
  - Cough [Unknown]
  - Weight decreased [Unknown]
  - Injection site pain [Unknown]
  - Decreased appetite [Recovered/Resolved]
  - Arthralgia [Recovered/Resolved]
  - Infusion related reaction [Recovered/Resolved]
  - Pruritus [Unknown]
  - Rash maculo-papular [Unknown]

NARRATIVE: CASE EVENT DATE: 20250412
